FAERS Safety Report 13578765 (Version 1)
Quarter: 2017Q2

REPORT INFORMATION
  Report Type: Spontaneous
  Country: US (occurrence: US)
  Receive Date: 20170524
  Receipt Date: 20170524
  Transmission Date: 20170830
  Serious: No
  Sender: FDA-Public Use
  Company Number: None

PATIENT
  Age: 72 Year
  Sex: Female

DRUGS (1)
  1. PROGRAF [Suspect]
     Active Substance: TACROLIMUS\TACROLIMUS ANHYDROUS

REACTIONS (9)
  - Urticaria [None]
  - Pruritus [None]
  - Hypertension [None]
  - Dizziness [None]
  - Chest discomfort [None]
  - Somnolence [None]
  - Pain [None]
  - Rash [None]
  - Back pain [None]

NARRATIVE: CASE EVENT DATE: 20170524
